FAERS Safety Report 19009241 (Version 1)
Quarter: 2021Q1

REPORT INFORMATION
  Report Type: Report from Study
  Country: US (occurrence: US)
  Receive Date: 20210315
  Receipt Date: 20210315
  Transmission Date: 20210420
  Serious: Yes (Other)
  Sender: FDA-Public Use
  Company Number: US-ASTRAZENECA-2021A128052

PATIENT
  Age: 25882 Day
  Sex: Female
  Weight: 52.2 kg

DRUGS (9)
  1. TYLENOL [Concomitant]
     Active Substance: ACETAMINOPHEN
  2. BIOTIN [Concomitant]
     Active Substance: BIOTIN
  3. CALCIUM 500 + D [Concomitant]
     Active Substance: CALCIUM\VITAMIN D
  4. LORAZEPAM. [Concomitant]
     Active Substance: LORAZEPAM
  5. ALLOPURINOL. [Concomitant]
     Active Substance: ALLOPURINOL
  6. CALQUENCE [Suspect]
     Active Substance: ACALABRUTINIB
     Indication: CHRONIC LYMPHOCYTIC LEUKAEMIA
     Route: 048
     Dates: start: 20200728, end: 20210309
  7. VITAMIN E [Concomitant]
     Active Substance: .ALPHA.-TOCOPHEROL
  8. COD LIVER OIL [Concomitant]
     Active Substance: COD LIVER OIL
  9. VITAMIN C [Concomitant]
     Active Substance: ASCORBIC ACID

REACTIONS (1)
  - Pneumonitis [Unknown]

NARRATIVE: CASE EVENT DATE: 20210309
